FAERS Safety Report 19009420 (Version 1)
Quarter: 2021Q1

REPORT INFORMATION
  Report Type: Spontaneous
  Country: FR (occurrence: FR)
  Receive Date: 20210315
  Receipt Date: 20210315
  Transmission Date: 20210420
  Serious: Yes (Other)
  Sender: FDA-Public Use
  Company Number: FR-BEH-2021129234

PATIENT
  Age: 10 Year
  Sex: Male
  Weight: 30 kg

DRUGS (6)
  1. TEGRETOL [Concomitant]
     Active Substance: CARBAMAZEPINE
     Route: 048
     Dates: start: 20210204, end: 20210223
  2. MICROPAKINE [Concomitant]
     Active Substance: VALPROATE SODIUM
     Route: 048
     Dates: start: 20210126, end: 20210223
  3. TERCIAN [CYAMEMAZINE] [Concomitant]
     Active Substance: CYAMEMAZINE
     Dosage: 6 GTT (1/12 ML), QD
     Route: 048
     Dates: start: 20210201, end: 20210222
  4. PRIVIGEN [Suspect]
     Active Substance: HUMAN IMMUNOGLOBULIN G
     Indication: ENCEPHALITIS AUTOIMMUNE
     Route: 041
     Dates: start: 20210203, end: 20210204
  5. URBANYL [Concomitant]
     Active Substance: CLOBAZAM
     Route: 048
     Dates: start: 20210126, end: 20210223
  6. MELATONINE [Concomitant]
     Active Substance: MELATONIN
     Route: 048
     Dates: start: 20210126, end: 20210221

REACTIONS (3)
  - No adverse event [Unknown]
  - Off label use [Unknown]
  - Somnolence [Recovered/Resolved]

NARRATIVE: CASE EVENT DATE: 20210204
